FAERS Safety Report 16304560 (Version 2)
Quarter: 2019Q2

REPORT INFORMATION
  Report Type: Spontaneous
  Country: US (occurrence: US)
  Receive Date: 20190513
  Receipt Date: 20190614
  Transmission Date: 20190711
  Serious: No
  Sender: FDA-Public Use
  Company Number: US-PFIZER INC-2019202314

PATIENT
  Age: 41 Year
  Sex: Female

DRUGS (2)
  1. POLYSPORIN [Suspect]
     Active Substance: BACITRACIN ZINC\POLYMYXIN B SULFATE
     Dosage: UNK
     Route: 061
     Dates: start: 200501
  2. NEOSPORIN [Suspect]
     Active Substance: BACITRACIN ZINC\NEOMYCIN SULFATE\POLYMYXIN B SULFATE
     Dosage: UNK
     Route: 061
     Dates: start: 200501

REACTIONS (2)
  - Drug hypersensitivity [Recovered/Resolved]
  - Urticaria [Recovered/Resolved]

NARRATIVE: CASE EVENT DATE: 200501
